FAERS Safety Report 21039370 (Version 1)
Quarter: 2022Q3

REPORT INFORMATION
  Report Type: Spontaneous
  Country: HR (occurrence: HR)
  Receive Date: 20220704
  Receipt Date: 20220704
  Transmission Date: 20221027
  Serious: Yes (Other)
  Sender: FDA-Public Use
  Company Number: None

PATIENT
  Age: 15 Year
  Sex: Male

DRUGS (1)
  1. ESTRADIOL [Suspect]
     Active Substance: ESTRADIOL
     Indication: Product used for unknown indication
     Dosage: UNK
     Route: 062
     Dates: start: 202112, end: 20220529

REACTIONS (2)
  - Oestradiol increased [Unknown]
  - Drug abuse [Unknown]

NARRATIVE: CASE EVENT DATE: 20211201
